FAERS Safety Report 12626903 (Version 2)
Quarter: 2016Q3

REPORT INFORMATION
  Report Type: Spontaneous
  Country: GB (occurrence: GB)
  Receive Date: 20160805
  Receipt Date: 20160824
  Transmission Date: 20161109
  Serious: Yes (Other)
  Sender: FDA-Public Use
  Company Number: GB-HQ SPECIALTY-GB-2016INT000707

PATIENT
  Age: 46 Year
  Sex: Female

DRUGS (1)
  1. METHOTREXATE SODIUM. [Suspect]
     Active Substance: METHOTREXATE SODIUM
     Indication: RHEUMATOID ARTHRITIS
     Dosage: 2.8571 MG, (20 MG,1 IN 1 W)
     Route: 048

REACTIONS (3)
  - Fall [Unknown]
  - Lower respiratory tract infection [Unknown]
  - Malaise [Unknown]

NARRATIVE: CASE EVENT DATE: 201212
